FAERS Safety Report 4985207-7 (Version None)
Quarter: 2006Q2

REPORT INFORMATION
  Report Type: 
  Country: None (occurrence: None)
  Receive Date: 20060427
  Receipt Date: 20051025
  Transmission Date: 20061013
  Serious: Yes (Hospitalization, Disabling, Other)
  Sender: FDA-Public Use
  Company Number: US-MERCK-0510USA09046

PATIENT
  Sex: Female
  Weight: 68 kg

DRUGS (4)
  1. VIOXX [Suspect]
     Indication: ARTHRITIS
     Route: 048
     Dates: end: 20030401
  2. VIOXX [Suspect]
     Route: 048
     Dates: end: 20030401
  3. VIOXX [Suspect]
     Indication: BACK PAIN
     Route: 048
     Dates: end: 20030401
  4. VIOXX [Suspect]
     Route: 048
     Dates: end: 20030401

REACTIONS (9)
  - ANEURYSM [None]
  - CARDIOVASCULAR DISORDER [None]
  - CEREBRAL THROMBOSIS [None]
  - CHEST PAIN [None]
  - INTERMITTENT CLAUDICATION [None]
  - INTRACARDIAC THROMBUS [None]
  - INTRACRANIAL ANEURYSM [None]
  - NERVOUS SYSTEM DISORDER [None]
  - THROMBOSIS [None]
